FAERS Safety Report 9513288 (Version 1)
Quarter: 2013Q3

REPORT INFORMATION
  Report Type: Spontaneous
  Country: US (occurrence: US)
  Receive Date: 20130910
  Receipt Date: 20130910
  Transmission Date: 20140515
  Serious: Yes (Other)
  Sender: FDA-Public Use
  Company Number: US-WATSON-2013-15766

PATIENT
  Sex: Male
  Weight: 84 kg

DRUGS (2)
  1. RAPAFLO (WATSON LABORATORIES) [Suspect]
     Indication: PROSTATOMEGALY
     Dosage: 8 MG, QPM
     Route: 048
  2. FEXOFENADINE [Suspect]
     Indication: HYPERSENSITIVITY
     Dosage: 180 MG, QAM
     Route: 048
     Dates: end: 20130827

REACTIONS (2)
  - Anuria [Not Recovered/Not Resolved]
  - Prostatomegaly [Not Recovered/Not Resolved]
